FAERS Safety Report 15533305 (Version 1)
Quarter: 2018Q4

REPORT INFORMATION
  Report Type: Spontaneous
  Country: BR (occurrence: BR)
  Receive Date: 20181019
  Receipt Date: 20181019
  Transmission Date: 20190205
  Serious: Yes (Hospitalization, Other)
  Sender: FDA-Public Use
  Company Number: BR-GLAXOSMITHKLINE-BR2018GSK189967

PATIENT
  Age: 7 Month
  Sex: Female
  Weight: 10 kg

DRUGS (3)
  1. RILAN (DISODIUM CROMOGLYCATE) [Concomitant]
     Indication: ASTHMA
     Dosage: 1 UNK, BID
     Route: 045
     Dates: start: 20180716
  2. FLIXOTIDE (CFC-FREE) [Suspect]
     Active Substance: FLUTICASONE PROPIONATE
     Indication: ASTHMA
     Dosage: 2 PUFF(S), BID
     Route: 055
     Dates: start: 20180716
  3. AEROLIN [Suspect]
     Active Substance: ALBUTEROL
     Indication: ASTHMA
     Dosage: 2 PUFF(S), QID
     Route: 055
     Dates: start: 20180716

REACTIONS (3)
  - Asthmatic crisis [Recovered/Resolved]
  - Product prescribing issue [Recovered/Resolved]
  - Product use issue [Not Recovered/Not Resolved]

NARRATIVE: CASE EVENT DATE: 20181001
